FAERS Safety Report 15678527 (Version 3)
Quarter: 2019Q2

REPORT INFORMATION
  Report Type: Report from Study
  Country: CA (occurrence: CA)
  Receive Date: 20181201
  Receipt Date: 20190531
  Transmission Date: 20190711
  Serious: Yes (Other)
  Sender: FDA-Public Use
  Company Number: PHHY2018CA167592

PATIENT
  Sex: Male

DRUGS (2)
  1. MEKINIST [Suspect]
     Active Substance: TRAMETINIB DIMETHYL SULFOXIDE
     Indication: METASTATIC MALIGNANT MELANOMA
     Dosage: 2 MG, UNK
     Route: 048
     Dates: start: 20181107
  2. TAFINLAR [Suspect]
     Active Substance: DABRAFENIB MESYLATE
     Indication: METASTATIC MALIGNANT MELANOMA
     Dosage: 300 MG, UNK
     Route: 048
     Dates: start: 20181107

REACTIONS (15)
  - Metastatic malignant melanoma [Unknown]
  - Fear [Unknown]
  - Heart rate increased [Not Recovered/Not Resolved]
  - Fatigue [Unknown]
  - Blood pressure increased [Recovering/Resolving]
  - Dyspnoea [Unknown]
  - Body temperature increased [Recovered/Resolved]
  - Malignant neoplasm progression [Unknown]
  - Body temperature decreased [Unknown]
  - Abdominal pain upper [Not Recovered/Not Resolved]
  - Tenderness [Unknown]
  - Lethargy [Unknown]
  - Tumour haemorrhage [Recovering/Resolving]
  - Nausea [Recovering/Resolving]
  - Blood pressure fluctuation [Unknown]
